FAERS Safety Report 15135039 (Version 5)
Quarter: 2019Q1

REPORT INFORMATION
  Report Type: Spontaneous
  Country: US (occurrence: US)
  Receive Date: 20180712
  Receipt Date: 20190123
  Transmission Date: 20190417
  Serious: No
  Sender: FDA-Public Use
  Company Number: US-PFIZER INC-2018281519

PATIENT
  Age: 52 Year
  Sex: Female

DRUGS (18)
  1. DOCETAXEL. [Suspect]
     Active Substance: DOCETAXEL
     Indication: BREAST CANCER FEMALE
     Dosage: 140 MG, CYCLIC (EVERY 3 WEEKS, FOR 6 CYCLES)
     Dates: start: 20110407, end: 20110721
  2. DOXIL [Concomitant]
     Active Substance: DOXORUBICIN HYDROCHLORIDE
     Indication: CHEMOTHERAPY
     Dosage: UNK
  3. FOSAPREPITANT [Concomitant]
     Active Substance: FOSAPREPITANT
     Dosage: UNK
  4. ALOXI [Concomitant]
     Active Substance: PALONOSETRON HYDROCHLORIDE
     Dosage: UNK
  5. PROCHLORPERAZINE MALEATE. [Concomitant]
     Active Substance: PROCHLORPERAZINE MALEATE
     Dosage: UNK
  6. ARIMIDEX [Concomitant]
     Active Substance: ANASTROZOLE
     Indication: HORMONE THERAPY
     Dosage: UNK
     Dates: start: 20110519
  7. LORAZEPAM. [Concomitant]
     Active Substance: LORAZEPAM
     Dosage: UNK
  8. ZOFRAN [Concomitant]
     Active Substance: ONDANSETRON HYDROCHLORIDE
     Dosage: UNK
     Dates: start: 20110217, end: 20110519
  9. DEXAMETHASONE. [Concomitant]
     Active Substance: DEXAMETHASONE
     Dosage: UNK
  10. VESICARE [Concomitant]
     Active Substance: SOLIFENACIN SUCCINATE
     Dosage: UNK
     Dates: start: 20101129
  11. ADRIAMYCIN [Concomitant]
     Active Substance: DOXORUBICIN HYDROCHLORIDE
     Indication: CHEMOTHERAPY
     Dosage: UNK
  12. CYTOXAN [Concomitant]
     Active Substance: CYCLOPHOSPHAMIDE
     Indication: CHEMOTHERAPY
     Dosage: UNK
  13. LOMOTIL [Concomitant]
     Active Substance: ATROPINE SULFATE\DIPHENOXYLATE HYDROCHLORIDE
     Dosage: UNK
  14. TAMOXIFEN [Concomitant]
     Active Substance: TAMOXIFEN
     Indication: HORMONE THERAPY
     Dosage: UNK
     Dates: start: 20110901
  15. NEOSAR [Concomitant]
     Active Substance: CYCLOPHOSPHAMIDE
     Indication: CHEMOTHERAPY
     Dosage: UNK
  16. SYNTHROID [Concomitant]
     Active Substance: LEVOTHYROXINE SODIUM
     Dosage: UNK
     Dates: start: 20050113, end: 20130709
  17. NEULASTA [Concomitant]
     Active Substance: PEGFILGRASTIM
     Dosage: UNK
  18. CEFZIL [Concomitant]
     Active Substance: CEFPROZIL
     Dosage: UNK

REACTIONS (5)
  - Hair texture abnormal [Not Recovered/Not Resolved]
  - Madarosis [Not Recovered/Not Resolved]
  - Alopecia [Not Recovered/Not Resolved]
  - Hair disorder [Not Recovered/Not Resolved]
  - Hair colour changes [Not Recovered/Not Resolved]

NARRATIVE: CASE EVENT DATE: 20120101
